FAERS Safety Report 24637219 (Version 3)
Quarter: 2024Q4

REPORT INFORMATION
  Report Type: Report from Study
  Country: CO (occurrence: CO)
  Receive Date: 20241119
  Receipt Date: 20241223
  Transmission Date: 20250115
  Serious: Yes (Hospitalization, Other)
  Sender: RECORDATI
  Company Number: CO-RECORDATI RARE DISEASES-2024004162

PATIENT

DRUGS (13)
  1. PANHEMATIN [Suspect]
     Active Substance: HEMIN
     Indication: Porphyria acute
     Dosage: 350 MG, 4 VIAL MONTHLY
     Route: 042
     Dates: start: 20240428, end: 2024
  2. PANHEMATIN [Suspect]
     Active Substance: HEMIN
     Dosage: 350 MG, QD (CYCLE OF 4 VIALS)
     Route: 042
     Dates: start: 20240514, end: 202405
  3. PANHEMATIN [Suspect]
     Active Substance: HEMIN
     Dosage: 350 MG, QD (CYCLE OF 4 VIALS)
     Route: 042
     Dates: start: 20240525, end: 20240528
  4. PANHEMATIN [Suspect]
     Active Substance: HEMIN
     Dosage: UNK (4TH CYCLE)
     Route: 042
     Dates: start: 2024, end: 2024
  5. PANHEMATIN [Suspect]
     Active Substance: HEMIN
     Dosage: UNK (5TH CYCLE)
     Route: 042
     Dates: start: 2024, end: 2024
  6. PANHEMATIN [Suspect]
     Active Substance: HEMIN
     Dosage: UNK (6TH CYCLE)
     Route: 042
     Dates: start: 2024, end: 2024
  7. OMEPRAZOLE [Concomitant]
     Active Substance: OMEPRAZOLE
     Indication: Product used for unknown indication
     Dosage: 20 MG, QD
     Route: 048
     Dates: start: 20240402
  8. LACOSAMIDE [Concomitant]
     Active Substance: LACOSAMIDE
     Indication: Product used for unknown indication
     Dosage: 200 MG, Q12H
     Dates: start: 20240402
  9. VALPROIC ACID [Concomitant]
     Active Substance: VALPROIC ACID
     Indication: Product used for unknown indication
     Dosage: 500 MG, Q8H
     Route: 042
     Dates: start: 20240402
  10. CLOBAZAM [Concomitant]
     Active Substance: CLOBAZAM
     Indication: Product used for unknown indication
     Dosage: 10 MG, QD (NIGHTLY)
     Dates: start: 20240402
  11. QUETIAPINE [Concomitant]
     Active Substance: QUETIAPINE
     Indication: Product used for unknown indication
     Dosage: 25 MG, QD (NIGHTLY)
     Dates: start: 20240402
  12. ACETAMINOPHEN [Concomitant]
     Active Substance: ACETAMINOPHEN
     Indication: Product used for unknown indication
     Dosage: 1 GRAM, Q8H
     Route: 048
     Dates: start: 20240402
  13. ENOXAPARIN [Concomitant]
     Active Substance: ENOXAPARIN
     Indication: Product used for unknown indication
     Dosage: 40 MG, QD
     Route: 058
     Dates: start: 20240402

REACTIONS (9)
  - Encephalopathy [Unknown]
  - Condition aggravated [Unknown]
  - Anaemia [Recovered/Resolved]
  - Somnolence [Recovered/Resolved]
  - Headache [Recovered/Resolved]
  - Injection site pain [Unknown]
  - Injection site haematoma [Unknown]
  - Injection site pain [Unknown]
  - Drug ineffective [Recovered/Resolved]

NARRATIVE: CASE EVENT DATE: 20240101
